FAERS Safety Report 13192746 (Version 1)
Quarter: 2017Q1

REPORT INFORMATION
  Report Type: Spontaneous
  Country: CN (occurrence: CN)
  Receive Date: 20170207
  Receipt Date: 20170207
  Transmission Date: 20170428
  Serious: Yes (Other)
  Sender: FDA-Public Use
  Company Number: CN-PFIZER INC-2017054531

PATIENT
  Age: 34 Year
  Sex: Male
  Weight: 65 kg

DRUGS (1)
  1. CELECOXIB. [Suspect]
     Active Substance: CELECOXIB
     Indication: GOUT
     Dosage: 1 CAPSULE, 1X/DAY
     Route: 048
     Dates: start: 20161121, end: 20161121

REACTIONS (1)
  - Fixed drug eruption [Recovered/Resolved]

NARRATIVE: CASE EVENT DATE: 20161122
